FAERS Safety Report 8010257-6 (Version None)
Quarter: 2011Q4

REPORT INFORMATION
  Report Type: 
  Country: None (occurrence: None)
  Receive Date: 20111228
  Receipt Date: 20111219
  Transmission Date: 20120403
  Serious: Yes (Hospitalization)
  Sender: FDA-Public Use
  Company Number: GB-JNJFOC-20110410383

PATIENT
  Sex: Male

DRUGS (4)
  1. REMICADE [Suspect]
     Dosage: 2ND DOSE
     Route: 042
     Dates: start: 20110421
  2. REMICADE [Suspect]
     Indication: CROHN'S DISEASE
     Route: 042
     Dates: start: 20110407
  3. OMEPRAZOLE [Concomitant]
  4. AZATHIOPRINE [Concomitant]

REACTIONS (6)
  - CHEST PAIN [None]
  - PARAESTHESIA [None]
  - SOMNOLENCE [None]
  - DYSPNOEA [None]
  - TACHYCARDIA [None]
  - INFUSION RELATED REACTION [None]
